FAERS Safety Report 20420529 (Version 1)
Quarter: 2022Q1

REPORT INFORMATION
  Report Type: Spontaneous
  Country: US (occurrence: US)
  Receive Date: 20220203
  Receipt Date: 20220203
  Transmission Date: 20220423
  Serious: No
  Sender: FDA-Public Use
  Company Number: US-JNJFOC-20220145930

PATIENT

DRUGS (1)
  1. MENS ROGAINE [Suspect]
     Active Substance: MINOXIDIL
     Indication: Accidental exposure to product
     Route: 048

REACTIONS (4)
  - Illness [Unknown]
  - Accidental exposure to product [Unknown]
  - Product storage error [Unknown]
  - Drug screen positive [Unknown]
